FAERS Safety Report 8602973-X (Version None)
Quarter: 2012Q3

REPORT INFORMATION
  Report Type: 
  Country: None (occurrence: None)
  Receive Date: 20120817
  Receipt Date: 19900111
  Transmission Date: 20120928
  Serious: Yes (Hospitalization)
  Sender: FDA-Public Use
  Company Number: US-ROCHE-1100509

PATIENT
  Sex: Male

DRUGS (5)
  1. LOPRESSOR [Concomitant]
  2. HEPARIN [Concomitant]
  3. NITROGLYCERIN [Concomitant]
     Route: 042
  4. ASPIRIN [Concomitant]
  5. ACTIVASE [Suspect]
     Indication: ACUTE MYOCARDIAL INFARCTION

REACTIONS (3)
  - VENTRICULAR EXTRASYSTOLES [None]
  - CHEST PAIN [None]
  - PAIN IN EXTREMITY [None]
